FAERS Safety Report 7751059-5 (Version None)
Quarter: 2011Q3

REPORT INFORMATION
  Report Type: 
  Country: None (occurrence: None)
  Receive Date: 20110914
  Receipt Date: 20101228
  Transmission Date: 20111222
  Serious: No
  Sender: FDA-Public Use
  Company Number: US-MYLANLABS-2010S1022696

PATIENT
  Age: 59 Year
  Sex: Female

DRUGS (6)
  1. THYROID TAB [Concomitant]
     Indication: HYPOTHYROIDISM
     Route: 048
  2. IMDUR [Concomitant]
     Indication: BLOOD PRESSURE INCREASED
     Route: 048
  3. SPIRONOLACTONE [Suspect]
     Route: 048
     Dates: start: 20101205
  4. HYTRIN [Concomitant]
     Indication: BLOOD PRESSURE INCREASED
     Route: 048
  5. SPIRONOLACTONE [Suspect]
     Indication: BLOOD PRESSURE INCREASED
     Route: 048
     Dates: start: 20101001, end: 20101101
  6. SPIRONOLACTONE [Suspect]
     Route: 048
     Dates: start: 20101101, end: 20101205

REACTIONS (2)
  - OEDEMA PERIPHERAL [None]
  - ARTHRALGIA [None]
